FAERS Safety Report 12464307 (Version 1)
Quarter: 2016Q2

REPORT INFORMATION
  Report Type: Spontaneous
  Country: DE (occurrence: DE)
  Receive Date: 20160614
  Receipt Date: 20160614
  Transmission Date: 20160815
  Serious: Yes (Other)
  Sender: FDA-Public Use
  Company Number: DE-DRREDDYS-GER/GER/16/0080421

PATIENT
  Age: 31 Year
  Sex: Female

DRUGS (3)
  1. VENLAFAXINE [Suspect]
     Active Substance: VENLAFAXINE HYDROCHLORIDE
     Route: 048
     Dates: start: 20160210, end: 20160211
  2. VENLAFAXINE [Suspect]
     Active Substance: VENLAFAXINE HYDROCHLORIDE
     Route: 048
     Dates: start: 20160212
  3. VENLAFAXINE [Suspect]
     Active Substance: VENLAFAXINE HYDROCHLORIDE
     Indication: OBSESSIVE THOUGHTS
     Route: 048
     Dates: start: 20160125, end: 20160210

REACTIONS (4)
  - Nausea [Recovered/Resolved]
  - Sinus tachycardia [Recovering/Resolving]
  - Restless legs syndrome [Unknown]
  - Palpitations [Unknown]

NARRATIVE: CASE EVENT DATE: 20160211
